FAERS Safety Report 6348284-7 (Version None)
Quarter: 2009Q3

REPORT INFORMATION
  Report Type: 
  Country: None (occurrence: None)
  Receive Date: 20090908
  Receipt Date: 20090827
  Transmission Date: 20100115
  Serious: Yes (Other)
  Sender: FDA-Public Use
  Company Number: CHNY2009GB03359

PATIENT
  Sex: Male

DRUGS (1)
  1. NICOTINE [Suspect]
     Dosage: 4 MG, CHEWED

REACTIONS (6)
  - CIRCUMORAL OEDEMA [None]
  - DYSPNOEA [None]
  - HYPERSENSITIVITY [None]
  - OCULAR HYPERAEMIA [None]
  - PARAESTHESIA [None]
  - SWOLLEN TONGUE [None]
